FAERS Safety Report 8159120-0 (Version None)
Quarter: 2012Q1

REPORT INFORMATION
  Report Type: 
  Country: None (occurrence: None)
  Receive Date: 20120103
  Receipt Date: 20111122
  Transmission Date: 20120608
  Serious: No
  Sender: FDA-Public Use
  Company Number: AE-2011-003904

PATIENT
  Age: 57 Year
  Sex: Male
  Weight: 92.9874 kg

DRUGS (8)
  1. REBETOL [Concomitant]
  2. PEGASYS [Concomitant]
  3. LOSARTAN POTASSIUM [Concomitant]
  4. INCIVEK [Suspect]
     Dosage: 2250 MG(750 MG, 1 IN 8 HR), ORAL
     Route: 048
     Dates: start: 20111108
  5. LANTUS [Concomitant]
  6. METFORMIN HCL [Concomitant]
  7. VICODIN ES [Concomitant]
  8. SPIRONOLACTONE [Concomitant]

REACTIONS (3)
  - ANORECTAL DISCOMFORT [None]
  - CHILLS [None]
  - WEIGHT DECREASED [None]
